FAERS Safety Report 4557977-3 (Version None)
Quarter: 2005Q1

REPORT INFORMATION
  Report Type: 
  Country: None (occurrence: None)
  Receive Date: 20050121
  Receipt Date: 20040329
  Transmission Date: 20050727
  Serious: No
  Sender: FDA-Public Use
  Company Number: US-BRISTOL-MYERS SQUIBB COMPANY-12544987

PATIENT
  Age: 48 Year
  Sex: Male
  Weight: 84 kg

DRUGS (5)
  1. SERZONE [Suspect]
     Indication: DEPRESSION
     Route: 048
  2. ACYCLOVIR [Concomitant]
  3. VITAMIN E [Concomitant]
  4. ZINC [Concomitant]
  5. MULTI-VITAMIN [Concomitant]

REACTIONS (1)
  - HEPATIC ENZYME ABNORMAL [None]
